FAERS Safety Report 7313514-1 (Version None)
Quarter: 2011Q1

REPORT INFORMATION
  Report Type: 
  Country: None (occurrence: None)
  Receive Date: 20110225
  Receipt Date: 20100203
  Transmission Date: 20110831
  Serious: No
  Sender: FDA-Public Use
  Company Number: US-MYLANLABS-2010S1001822

PATIENT
  Age: 62 Year
  Sex: Female
  Weight: 67.59 kg

DRUGS (7)
  1. SPIRIVA [Concomitant]
  2. NEXIUM [Concomitant]
  3. ASPIRIN [Concomitant]
  4. LIPITOR [Concomitant]
  5. GLUCOPHAGE [Concomitant]
  6. METFORMIN [Suspect]
     Indication: DIABETES MELLITUS
     Route: 048
  7. SYNTHROID [Concomitant]

REACTIONS (2)
  - DRUG INEFFECTIVE [None]
  - BLOOD GLUCOSE FLUCTUATION [None]
